FAERS Safety Report 9627775 (Version 3)
Quarter: 2013Q4

REPORT INFORMATION
  Report Type: Spontaneous
  Country: DE (occurrence: JP)
  Receive Date: 20131016
  Receipt Date: 20131111
  Transmission Date: 20140711
  Serious: Yes (Hospitalization, Other)
  Sender: FDA-Public Use
  Company Number: JP-FRI-1000050132

PATIENT
  Age: 84 Year
  Sex: Male

DRUGS (11)
  1. MEMANTINE [Suspect]
     Indication: DEMENTIA ALZHEIMER^S TYPE
     Dosage: 5 MG
     Route: 048
     Dates: start: 20130927, end: 20131004
  2. TRAZENTA [Concomitant]
     Indication: DIABETES MELLITUS
     Dosage: 5 MG
     Route: 048
  3. GLUBES [Concomitant]
     Indication: DIABETES MELLITUS
     Route: 048
     Dates: start: 20130908, end: 20130909
  4. COBATHROW [Concomitant]
     Indication: HYPERTENSION
     Dosage: 2 MG
     Route: 048
     Dates: start: 20130908, end: 20130908
  5. CALTAN [Concomitant]
     Dosage: 1000 MG
     Route: 048
     Dates: start: 20130908, end: 20130908
  6. METHYCOBAL [Concomitant]
     Dosage: 1500 MCG
     Route: 048
     Dates: start: 20130908, end: 20130908
  7. PLETAAL OD [Concomitant]
     Dosage: 100 MG
     Route: 048
     Dates: start: 20130908
  8. PURSENNID [Concomitant]
     Dosage: 24 MG
     Route: 048
     Dates: start: 20130908, end: 20130908
  9. L CARTIN [Concomitant]
     Dosage: 1800 MG
     Route: 048
     Dates: start: 20130908, end: 20130908
  10. REMITCH [Concomitant]
     Dosage: 2.5 MCG
     Route: 048
     Dates: start: 20130908, end: 20130908
  11. EXELON [Concomitant]
     Dosage: 18 MG
     Dates: start: 20130908, end: 20130908

REACTIONS (1)
  - Altered state of consciousness [Recovered/Resolved]
